FAERS Safety Report 4348906-6 (Version None)
Quarter: 2004Q2

REPORT INFORMATION
  Report Type: 
  Country: None (occurrence: None)
  Receive Date: 20040421
  Receipt Date: 20040310
  Transmission Date: 20050107
  Serious: Yes (Other)
  Sender: FDA-Public Use
  Company Number: 30018815-C553594-1

PATIENT
  Age: 53 Year
  Sex: Female
  Weight: 91.6 kg

DRUGS (3)
  1. EXTRANEAL [Suspect]
     Indication: FLUID REPLACEMENT
     Dosage: 1.5 L DAILY IP
     Route: 033
     Dates: start: 20040305, end: 20040309
  2. DIANEAL [Concomitant]
  3. NORVASC [Concomitant]

REACTIONS (2)
  - RASH ERYTHEMATOUS [None]
  - RASH MACULAR [None]
